FAERS Safety Report 20921545 (Version 1)
Quarter: 2022Q2

REPORT INFORMATION
  Report Type: Spontaneous
  Country: US (occurrence: US)
  Receive Date: 20220606
  Receipt Date: 20220606
  Transmission Date: 20220720
  Serious: No
  Sender: FDA-Public Use
  Company Number: US-RIGEL PHARMACEUTICALS, INC.-2021FOS000394

PATIENT
  Sex: Female

DRUGS (1)
  1. TAVALISSE [Suspect]
     Active Substance: FOSTAMATINIB
     Indication: Immune thrombocytopenia
     Dosage: 150 MG, BID
     Route: 048

REACTIONS (7)
  - Platelet count [Unknown]
  - Blood iron decreased [Unknown]
  - Gastric disorder [Unknown]
  - Ageusia [Unknown]
  - Metamorphopsia [Unknown]
  - Gait disturbance [Unknown]
  - Diarrhoea [Unknown]
